FAERS Safety Report 4734566-9 (Version None)
Quarter: 2005Q3

REPORT INFORMATION
  Report Type: 
  Country: None (occurrence: None)
  Receive Date: 20050729
  Receipt Date: 20050719
  Transmission Date: 20060218
  Serious: Yes (Hospitalization)
  Sender: FDA-Public Use
  Company Number: CIP05001686

PATIENT
  Age: 65 Year
  Sex: Female

DRUGS (4)
  1. ACTONEL [Suspect]
     Indication: BONE DISORDER
     Dosage: 30 MG ONCE WEEKLY, ORAL
     Route: 048
     Dates: start: 20020101, end: 20050101
  2. ACTONEL [Suspect]
     Dosage: 35 MG ONCE WEEKLY, ORAL
     Route: 048
     Dates: start: 20050601
  3. ACIPHEX [Concomitant]
  4. LESCOL [Concomitant]

REACTIONS (4)
  - CONDITION AGGRAVATED [None]
  - DYSPEPSIA [None]
  - HAEMOGLOBIN DECREASED [None]
  - POST PROCEDURAL HAEMORRHAGE [None]
